FAERS Safety Report 9998028 (Version 3)
Quarter: 2014Q2

REPORT INFORMATION
  Report Type: Spontaneous
  Country: JP (occurrence: JP)
  Receive Date: 20140311
  Receipt Date: 20140401
  Transmission Date: 20141212
  Serious: Yes (Other)
  Sender: FDA-Public Use
  Company Number: JP-PFIZER INC-2014068834

PATIENT
  Age: 60 Year
  Sex: Male

DRUGS (7)
  1. LYRICA [Suspect]
     Indication: PAIN
     Dosage: 150 MG, DAILY
     Route: 048
     Dates: start: 20140304, end: 20140308
  2. ZOVIRAX [Concomitant]
     Indication: HERPES ZOSTER
     Dosage: UNK
     Route: 048
     Dates: start: 20140303
  3. LUVOX [Concomitant]
     Indication: DEPRESSION
     Dosage: UNK
  4. ABILIFY [Concomitant]
     Indication: DEPRESSION
     Dosage: UNK
  5. MEMARY [Concomitant]
     Indication: DEPRESSION
     Dosage: UNK
  6. REMINYL [Concomitant]
     Indication: DEPRESSION
     Dosage: UNK
  7. VALTREX [Concomitant]
     Indication: HERPES ZOSTER
     Dosage: UNK

REACTIONS (3)
  - Fall [Recovered/Resolved]
  - Asthenia [Unknown]
  - Blood creatine phosphokinase increased [Unknown]
